FAERS Safety Report 10374995 (Version 1)
Quarter: 2014Q1

REPORT INFORMATION
  Report Type: Spontaneous
  Country: US (occurrence: None)
  Receive Date: 20140306
  Receipt Date: 20140306
  Transmission Date: 20141002
  Serious: Yes (Hospitalization, Disabling)
  Sender: FDA-Public Use
  Company Number: 163-21880-12121673

PATIENT
  Age: 67 Year
  Sex: Female

DRUGS (5)
  1. REVLIMID (LENALIDOMIDE) (10 MILLIGRAM, CAPSULES) [Suspect]
     Indication: PLASMA CELL MYELOMA
     Route: 048
     Dates: start: 201201
  2. AUGMENTIN [Concomitant]
  3. OXYGEN (GAS FOR INHALATION) [Concomitant]
  4. ACYCLOVIR (ACICLOVIR) (ACICLOVIR) [Concomitant]
  5. ASA (ACETYLSALICYLIC ACID) [Concomitant]

REACTIONS (1)
  - Candida pneumonia [None]
